FAERS Safety Report 5287587-4 (Version None)
Quarter: 2007Q1

REPORT INFORMATION
  Report Type: 
  Country: None (occurrence: None)
  Receive Date: 20070126
  Receipt Date: 20060303
  Transmission Date: 20070707
  Serious: No
  Sender: FDA-Public Use
  Company Number: 2006CT001109

PATIENT
  Age: 62 Year
  Sex: Female
  Weight: 79.8 kg

DRUGS (11)
  1. VENTAVIS [Suspect]
     Indication: PULMONARY HYPERTENSION
     Dosage: 5 UG 6XD INH
     Route: 055
     Dates: start: 20060215, end: 20060303
  2. WARFARIN SODIUM [Concomitant]
  3. TRAZODONE HCL [Concomitant]
  4. LISINOPRIL [Concomitant]
  5. PREDNISONE TAB [Concomitant]
  6. LEVOXYL [Concomitant]
  7. LESCOL [Concomitant]
  8. CELEBREX [Concomitant]
  9. HYDROCHLOROTHIAZIDE [Concomitant]
  10. TRACLEER [Concomitant]
  11. OXYGEN [Concomitant]

REACTIONS (2)
  - RESPIRATORY TRACT IRRITATION [None]
  - THROAT IRRITATION [None]
